FAERS Safety Report 13257409 (Version 1)
Quarter: 2017Q1

REPORT INFORMATION
  Report Type: Spontaneous
  Country: JP (occurrence: JP)
  Receive Date: 20170221
  Receipt Date: 20170221
  Transmission Date: 20170428
  Serious: Yes (Other)
  Sender: FDA-Public Use
  Company Number: JP-SA-2017SA026891

PATIENT

DRUGS (1)
  1. RASURITEK [Suspect]
     Active Substance: RASBURICASE
     Route: 042

REACTIONS (1)
  - Hepatitis fulminant [Unknown]
